FAERS Safety Report 5004589-3 (Version None)
Quarter: 2006Q2

REPORT INFORMATION
  Report Type: 
  Country: None (occurrence: None)
  Receive Date: 20060512
  Receipt Date: 20060501
  Transmission Date: 20061013
  Serious: Yes (Hospitalization, Other)
  Sender: FDA-Public Use
  Company Number: HQWYE714201DEC04

PATIENT
  Age: 71 Year
  Sex: Female
  Weight: 56.3 kg

DRUGS (3)
  1. PREMPRO [Suspect]
     Indication: MENOPAUSE
  2. ESTRACE [Suspect]
  3. FEMHRT [Suspect]

REACTIONS (4)
  - BREAST CANCER IN SITU [None]
  - CONTRALATERAL BREAST CANCER [None]
  - OESTROGEN RECEPTOR ASSAY POSITIVE [None]
  - PROGESTERONE RECEPTOR ASSAY POSITIVE [None]
